FAERS Safety Report 11579489 (Version 3)
Quarter: 2015Q4

REPORT INFORMATION
  Report Type: Spontaneous
  Country: BR (occurrence: BR)
  Receive Date: 20150930
  Receipt Date: 20151103
  Transmission Date: 20160304
  Serious: Yes (Other)
  Sender: FDA-Public Use
  Company Number: PHHY2015BR110296

PATIENT
  Age: 82 Year
  Sex: Female
  Weight: 63 kg

DRUGS (8)
  1. OMEPRAZOLE. [Concomitant]
     Active Substance: OMEPRAZOLE
     Indication: ABDOMINAL DISCOMFORT
     Dosage: 1 DF, QD
     Route: 048
  2. LIPITOR [Concomitant]
     Active Substance: ATORVASTATIN CALCIUM
     Indication: CARDIAC DISORDER
     Dosage: 1 DF, QD
     Route: 048
  3. CALCIUM SANDOZ FF [Suspect]
     Active Substance: CALCIUM
     Indication: BONE DISORDER
     Dosage: 1 DF, QD (AT LUNCH)
     Route: 048
  4. MODURETIC 5-50 [Concomitant]
     Active Substance: AMILORIDE HYDROCHLORIDE\HYDROCHLOROTHIAZIDE
     Indication: HYPERTENSION
     Dosage: 1 DF, QD
     Route: 048
  5. APRESOLIN [Suspect]
     Active Substance: HYDRALAZINE HYDROCHLORIDE
     Indication: PRODUCT USED FOR UNKNOWN INDICATION
     Dosage: 1 DF, QD (IN THE MORNING)
     Route: 048
  6. DACTEN [Concomitant]
     Indication: ANTICOAGULANT THERAPY
     Dosage: 1 DF, QD
     Route: 048
  7. DIOVAN AMLO [Concomitant]
     Active Substance: AMLODIPINE\VALSARTAN
     Indication: HYPERTENSION
     Dosage: 1 DF, QHS (AT NIGHT)
     Route: 048
  8. DIUPRESS [Concomitant]
     Indication: HYPERTENSION
     Dosage: 1 DF, QHS (AT NIGHT)
     Route: 048

REACTIONS (7)
  - Bone fissure [Recovered/Resolved]
  - Osteoporosis [Recovering/Resolving]
  - Pain [Recovered/Resolved]
  - Joint injury [Recovered/Resolved]
  - Exostosis [Recovering/Resolving]
  - Fall [Recovering/Resolving]
  - Spinal column injury [Unknown]

NARRATIVE: CASE EVENT DATE: 20150511
